FAERS Safety Report 9173905 (Version 1)
Quarter: 2013Q1

REPORT INFORMATION
  Report Type: Spontaneous
  Country: US (occurrence: None)
  Receive Date: 20130318
  Receipt Date: 20130318
  Transmission Date: 20140127
  Serious: Yes (Other)
  Sender: FDA-Public Use
  Company Number: None

PATIENT
  Age: 27 Year
  Sex: Female
  Weight: 74.84 kg

DRUGS (2)
  1. NUVARING [Suspect]
     Indication: CONVULSION
     Dates: start: 20120531, end: 20121215
  2. NUVARING [Suspect]
     Dates: start: 20120531, end: 20121215

REACTIONS (3)
  - Sleep terror [None]
  - Convulsion [None]
  - Stress [None]
